FAERS Safety Report 4437565-X (Version None)
Quarter: 2004Q3

REPORT INFORMATION
  Report Type: 
  Country: None (occurrence: None)
  Receive Date: 20040830
  Receipt Date: 20040830
  Transmission Date: 20050211
  Serious: Yes (Hospitalization)
  Sender: FDA-Public Use
  Company Number: None

PATIENT
  Age: 57 Year
  Sex: Male
  Weight: 65.8 kg

DRUGS (7)
  1. CEPHALEXIN [Suspect]
     Dosage: 500 MG Q6H BY MOUTH
     Route: 048
     Dates: start: 20040824, end: 20040611
  2. HYDROCHLORIAZIDE [Concomitant]
  3. LISINOPRIL [Concomitant]
  4. TRAZODONE HCL [Concomitant]
  5. SILDENAFIL CITRATE [Concomitant]
  6. MISOPROSTOL [Concomitant]
  7. NAPROXEN [Concomitant]

REACTIONS (1)
  - DIARRHOEA [None]
